FAERS Safety Report 7951786-0 (Version None)
Quarter: 2011Q4

REPORT INFORMATION
  Report Type: 
  Country: None (occurrence: None)
  Receive Date: 20111201
  Receipt Date: 20111129
  Transmission Date: 20120403
  Serious: No
  Sender: FDA-Public Use
  Company Number: US-B.I. PHARMACEUTICALS,INC./RIDGEFIELD-2011-BP-27078BP

PATIENT
  Sex: Female

DRUGS (4)
  1. BONIVA [Concomitant]
     Indication: OSTEOPOROSIS
  2. SPIRIVA [Suspect]
     Indication: CHRONIC OBSTRUCTIVE PULMONARY DISEASE
     Dosage: 18 MCG
     Route: 055
  3. ADVAIR DISKUS 100/50 [Concomitant]
     Indication: CHRONIC OBSTRUCTIVE PULMONARY DISEASE
     Route: 055
  4. DIOVAN [Concomitant]
     Indication: HYPERTENSION
     Route: 048

REACTIONS (2)
  - DYSPNOEA [None]
  - PAIN [None]
